FAERS Safety Report 19771831 (Version 1)
Quarter: 2021Q3

REPORT INFORMATION
  Report Type: Spontaneous
  Country: US (occurrence: US)
  Receive Date: 20210828
  Receipt Date: 20210828
  Transmission Date: 20211014
  Serious: Yes (Hospitalization)
  Sender: FDA-Public Use
  Company Number: None

PATIENT
  Age: 36 Year
  Sex: Male
  Weight: 135.9 kg

DRUGS (1)
  1. DOXORUBICIN HYDROCHLORIDE. [Suspect]
     Active Substance: DOXORUBICIN HYDROCHLORIDE

REACTIONS (4)
  - Catheter site mass [None]
  - Catheter site erythema [None]
  - Blood culture positive [None]
  - Klebsiella infection [None]

NARRATIVE: CASE EVENT DATE: 20210824
